FAERS Safety Report 4913038-2 (Version None)
Quarter: 2006Q1

REPORT INFORMATION
  Report Type: 
  Country: None (occurrence: None)
  Receive Date: 20060210
  Receipt Date: 20060127
  Transmission Date: 20060701
  Serious: Yes (Death, Hospitalization)
  Sender: FDA-Public Use
  Company Number: 2005S1004939

PATIENT
  Age: 63 Year
  Sex: Male

DRUGS (8)
  1. FENTANYL TRANSDERMAL SYSTEM [Suspect]
     Indication: HODGKIN'S DISEASE
     Dosage: 50 MVG/HR; Q3D; TDER
     Route: 062
     Dates: start: 20050614
  2. FENTANYL TRANSDERMAL SYSTEM [Suspect]
     Indication: PAIN
     Dosage: 50 MVG/HR; Q3D; TDER
     Route: 062
     Dates: start: 20050614
  3. HYDROCODONE BITARTRATE AND ACETAMINOPHEN [Suspect]
     Indication: HODGKIN'S DISEASE
     Dosage: 7.5 MG; PO
     Route: 048
  4. HYDROCODONE BITARTRATE AND ACETAMINOPHEN [Suspect]
     Indication: PAIN
     Dosage: 7.5 MG; PO
     Route: 048
  5. LEVOTHYROXINE SODIUM [Concomitant]
  6. VITAMINS [Concomitant]
  7. VINCRISTINE [Concomitant]
  8. CYCLOPHOSPHAMIDE [Concomitant]

REACTIONS (6)
  - ASTHENIA [None]
  - DRUG INEFFECTIVE [None]
  - HODGKIN'S DISEASE [None]
  - MASS [None]
  - PAIN [None]
  - PHARMACEUTICAL PRODUCT COMPLAINT [None]
